FAERS Safety Report 4625006-9 (Version None)
Quarter: 2005Q2

REPORT INFORMATION
  Report Type: 
  Country: None (occurrence: None)
  Receive Date: 20050325
  Receipt Date: 20050104
  Transmission Date: 20051028
  Serious: No
  Sender: FDA-Public Use
  Company Number: US_0501110966

PATIENT
  Age: 67 Year
  Sex: Female

DRUGS (1)
  1. FORTEO [Suspect]
     Indication: OSTEOPOROSIS
     Dates: start: 20041101

REACTIONS (6)
  - ABDOMINAL DISTENSION [None]
  - BONE PAIN [None]
  - CONSTIPATION [None]
  - HEADACHE [None]
  - INJECTION SITE HAEMORRHAGE [None]
  - NIGHT SWEATS [None]
